FAERS Safety Report 13234223 (Version 7)
Quarter: 2017Q4

REPORT INFORMATION
  Report Type: Spontaneous
  Country: US (occurrence: US)
  Receive Date: 20170215
  Receipt Date: 20171110
  Transmission Date: 20180320
  Serious: Yes (Congenital Anomaly, Other)
  Sender: FDA-Public Use
  Company Number: PHEH2017US004609

PATIENT
  Sex: Male

DRUGS (3)
  1. ZOFRAN [Suspect]
     Active Substance: ONDANSETRON HYDROCHLORIDE
     Indication: FOETAL EXPOSURE DURING PREGNANCY
     Route: 064
  2. ZOFRAN ODT [Suspect]
     Active Substance: ONDANSETRON HYDROCHLORIDE
     Indication: FOETAL EXPOSURE DURING PREGNANCY
     Dosage: MOTHER DOSE FREQUENCY: PRN
     Route: 064
  3. ZOFRAN [Suspect]
     Active Substance: ONDANSETRON HYDROCHLORIDE
     Indication: FOETAL EXPOSURE DURING PREGNANCY
     Dosage: MOTHER DOSE FREQUENCY: PRN
     Route: 064

REACTIONS (41)
  - Pleural effusion [Unknown]
  - Juvenile melanoma benign [Unknown]
  - Pharyngotonsillitis [Unknown]
  - Emotional distress [Unknown]
  - Malocclusion [Unknown]
  - Speech sound disorder [Unknown]
  - Adenoidal hypertrophy [Unknown]
  - Intestinal malrotation [Unknown]
  - Lower limb fracture [Unknown]
  - Urinary tract infection neonatal [Unknown]
  - Micrognathia [Unknown]
  - Pain [Unknown]
  - Gastrooesophageal reflux disease [Unknown]
  - Stomatitis [Unknown]
  - Cleft palate [Unknown]
  - Congenital hydronephrosis [Unknown]
  - Congenital megaureter [Unknown]
  - Infantile apnoea [Unknown]
  - Eustachian tube dysfunction [Unknown]
  - Tympanic membrane perforation [Unknown]
  - Chronic sinusitis [Unknown]
  - Speech disorder [Unknown]
  - Kidney malformation [Unknown]
  - Failure to thrive [Unknown]
  - Upper respiratory tract infection [Unknown]
  - Congenital anomaly [Unknown]
  - Left-to-right cardiac shunt [Unknown]
  - Foetal exposure during pregnancy [Unknown]
  - Injury [Unknown]
  - Telangiectasia [Unknown]
  - Kidney enlargement [Unknown]
  - Foreign body in ear [Unknown]
  - Oropharyngeal plaque [Unknown]
  - Otitis media acute [Unknown]
  - Weight gain poor [Unknown]
  - Tooth impacted [Unknown]
  - Atrial septal defect [Unknown]
  - Otitis media chronic [Unknown]
  - Conductive deafness [Unknown]
  - Language disorder [Unknown]
  - Pyrexia [Unknown]
